FAERS Safety Report 9773444 (Version 1)
Quarter: 2013Q4

REPORT INFORMATION
  Report Type: Spontaneous
  Country: US (occurrence: US)
  Receive Date: 20131219
  Receipt Date: 20131219
  Transmission Date: 20140711
  Serious: Yes (Other)
  Sender: FDA-Public Use
  Company Number: US-VERTEX PHARMACEUTICALS INC-2013-011841

PATIENT
  Sex: 0

DRUGS (4)
  1. INCIVEK [Suspect]
     Indication: HEPATITIS C
  2. PEGINTERFERON ALFA-2A [Suspect]
     Indication: HEPATITIS C
  3. RIBAVIRIN [Suspect]
     Indication: HEPATITIS C
  4. HAART/OTHER THERAPEUTIC PRODUCTS [Concomitant]
     Indication: HIV INFECTION

REACTIONS (9)
  - Hepatic cirrhosis [Unknown]
  - Anaemia [Unknown]
  - Off label use [Unknown]
  - CD4 lymphocytes decreased [Unknown]
  - White blood cell count decreased [Unknown]
  - Haemoglobin decreased [Unknown]
  - Platelet count decreased [Unknown]
  - Haemorrhoids [Unknown]
  - Pruritus [Unknown]
